FAERS Safety Report 4567337-7 (Version None)
Quarter: 2005Q1

REPORT INFORMATION
  Report Type: 
  Country: None (occurrence: None)
  Receive Date: 20050127
  Receipt Date: 20050112
  Transmission Date: 20050727
  Serious: Yes (Other)
  Sender: FDA-Public Use
  Company Number: S05-UKI-00210-01

PATIENT
  Age: 87 Year

DRUGS (6)
  1. ESCITALOPRAM OXALATE [Suspect]
     Indication: DEPRESSION
     Dosage: 5 MG QD PO
     Route: 048
     Dates: start: 20041213, end: 20041220
  2. ALBUTEROL [Concomitant]
  3. WARFARIN SODIUM [Concomitant]
  4. RAMIPRIL [Concomitant]
  5. RABEPRAZLE (RABEPRAZOLE) [Concomitant]
  6. ISOSORBIDE MONONITRATE [Concomitant]

REACTIONS (1)
  - HYPOGLYCAEMIA [None]
